FAERS Safety Report 15084499 (Version 1)
Quarter: 2018Q2

REPORT INFORMATION
  Report Type: Spontaneous
  Country: SE (occurrence: SE)
  Receive Date: 20180628
  Receipt Date: 20180628
  Transmission Date: 20180711
  Serious: Yes (Hospitalization)
  Sender: FDA-Public Use
  Company Number: SE-TEVA-2018-SE-913174

PATIENT
  Age: 37 Year
  Sex: Male

DRUGS (1)
  1. DOXYFERM [Suspect]
     Active Substance: DOXYCYCLINE
     Indication: BORRELIA INFECTION
     Route: 065
     Dates: start: 20180409, end: 20180419

REACTIONS (2)
  - Gastrointestinal inflammation [Recovering/Resolving]
  - Headache [Recovering/Resolving]

NARRATIVE: CASE EVENT DATE: 20180422
